FAERS Safety Report 19707958 (Version 1)
Quarter: 2021Q3

REPORT INFORMATION
  Report Type: Spontaneous
  Country: US (occurrence: US)
  Receive Date: 20210817
  Receipt Date: 20210817
  Transmission Date: 20211014
  Serious: Yes (Other)
  Sender: FDA-Public Use
  Company Number: US-SPECGX-T202100453

PATIENT
  Age: 46 Year
  Sex: Male
  Weight: 122 kg

DRUGS (2)
  1. OXYCODONE/ACETAMINOPHEN [Suspect]
     Active Substance: ACETAMINOPHEN\OXYCODONE HYDROCHLORIDE
     Indication: ARTHRITIS
     Dosage: UNK
     Route: 065
  2. OXYCODONE/ACETAMINOPHEN [Suspect]
     Active Substance: ACETAMINOPHEN\OXYCODONE HYDROCHLORIDE
     Dosage: UNK
     Route: 065
     Dates: start: 2017, end: 201705

REACTIONS (4)
  - Imprisonment [Unknown]
  - Homeless [Unknown]
  - Drug dependence [Recovered/Resolved]
  - Alcohol use [Unknown]

NARRATIVE: CASE EVENT DATE: 199806
